FAERS Safety Report 8174827-7 (Version None)
Quarter: 2012Q1

REPORT INFORMATION
  Report Type: 
  Country: None (occurrence: None)
  Receive Date: 20120229
  Receipt Date: 20120217
  Transmission Date: 20120608
  Serious: Yes (Other)
  Sender: FDA-Public Use
  Company Number: PHFR2011IE007346

PATIENT
  Sex: Male

DRUGS (1)
  1. CLOZARIL [Suspect]
     Indication: SCHIZOPHRENIA
     Route: 048
     Dates: start: 20111118

REACTIONS (6)
  - VOMITING [None]
  - GASTROINTESTINAL INFECTION [None]
  - NAUSEA [None]
  - URINARY TRACT INFECTION [None]
  - BODY TEMPERATURE INCREASED [None]
  - BLOOD URINE PRESENT [None]
